FAERS Safety Report 16598180 (Version 2)
Quarter: 2019Q3

REPORT INFORMATION
  Report Type: Report from Study
  Country: US (occurrence: US)
  Receive Date: 20190719
  Receipt Date: 20190729
  Transmission Date: 20191004
  Serious: Yes (Hospitalization, Other)
  Sender: FDA-Public Use
  Company Number: US-TESAROUBC-2019-TSO00002-US

PATIENT
  Age: 65 Year
  Sex: Female

DRUGS (5)
  1. ZEJULA [Suspect]
     Active Substance: NIRAPARIB
     Dosage: ALTERNATING 100MG/200MG EVERY OTHER DAY AM W/BREAKFAST
     Route: 065
     Dates: start: 201812, end: 20190221
  2. ZEJULA [Suspect]
     Active Substance: NIRAPARIB
     Indication: FALLOPIAN TUBE CANCER
     Dosage: 100 MG, QD
     Route: 048
     Dates: start: 20180627, end: 20180716
  3. ZEJULA [Suspect]
     Active Substance: NIRAPARIB
     Dosage: 100 MG, QD
     Route: 048
     Dates: start: 20180730, end: 2018
  4. ZEJULA [Suspect]
     Active Substance: NIRAPARIB
     Dosage: 200 MG, QD AM - W/ BREAKFAST
     Route: 048
     Dates: start: 2018, end: 201812
  5. ZEJULA [Suspect]
     Active Substance: NIRAPARIB
     Dosage: ALTERNATING 100MG/200MG EVERY OTHER DAY AM W/BREAKFAST
     Route: 065
     Dates: start: 20190311

REACTIONS (18)
  - Constipation [Not Recovered/Not Resolved]
  - Fatigue [Unknown]
  - Dyspepsia [Unknown]
  - Faecaloma [Unknown]
  - Carbon monoxide poisoning [Unknown]
  - Pain of skin [Unknown]
  - Inappropriate schedule of product administration [Unknown]
  - Pruritus [Not Recovered/Not Resolved]
  - Paraesthesia [Unknown]
  - Rosacea [Not Recovered/Not Resolved]
  - Swelling [Not Recovered/Not Resolved]
  - Photosensitivity reaction [Unknown]
  - Rash [Unknown]
  - Rash macular [Not Recovered/Not Resolved]
  - Burning sensation [Unknown]
  - Abdominal pain upper [Unknown]
  - Myalgia [Not Recovered/Not Resolved]
  - Arthralgia [Not Recovered/Not Resolved]

NARRATIVE: CASE EVENT DATE: 201812
